FAERS Safety Report 8089406-X (Version None)
Quarter: 2012Q1

REPORT INFORMATION
  Report Type: 
  Country: None (occurrence: None)
  Receive Date: 20120128
  Receipt Date: 20110726
  Transmission Date: 20120608
  Serious: No
  Sender: FDA-Public Use
  Company Number: US-ABBOTT-11P-163-0725199-00

PATIENT
  Age: 68 Year
  Sex: Male

DRUGS (4)
  1. POTASSIUM CHLORIDE [Concomitant]
     Indication: HYPERKALAEMIA
     Dosage: DAILY
  2. TRAVATAN [Concomitant]
     Indication: GLAUCOMA
  3. HUMIRA [Suspect]
     Indication: PSORIASIS
     Dates: start: 20060701, end: 20110722
  4. HYZAAR [Concomitant]
     Indication: HYPERTENSION
     Dosage: 100/25 DAILY

REACTIONS (2)
  - PSORIASIS [None]
  - DRUG EFFECT DECREASED [None]
